FAERS Safety Report 6157965-X (Version None)
Quarter: 2009Q2

REPORT INFORMATION
  Report Type: 
  Country: None (occurrence: None)
  Receive Date: 20090417
  Receipt Date: 20090406
  Transmission Date: 20091009
  Serious: Yes (Hospitalization)
  Sender: FDA-Public Use
  Company Number: KR-WYE-H08831509

PATIENT
  Sex: Male
  Weight: 56 kg

DRUGS (3)
  1. SIROLIMUS [Suspect]
     Indication: PROPHYLAXIS AGAINST TRANSPLANT REJECTION
     Route: 048
     Dates: start: 20081024
  2. DIOVAN [Concomitant]
     Indication: HYPERTENSION
     Dosage: UNSPECIFIED
     Dates: start: 20080429
  3. LIPITOR [Concomitant]
     Indication: HYPERCHOLESTEROLAEMIA
     Dosage: UNSPECIFIED
     Dates: start: 20090312

REACTIONS (1)
  - DIABETES MELLITUS [None]
